FAERS Safety Report 24440877 (Version 2)
Quarter: 2024Q4

REPORT INFORMATION
  Report Type: Report from Study
  Country: JP (occurrence: JP)
  Receive Date: 20241016
  Receipt Date: 20241017
  Transmission Date: 20250115
  Serious: No
  Sender: ROCHE
  Company Number: JP-CHUGAI-2023035033

PATIENT
  Age: 10 Year
  Sex: Male
  Weight: 26.5 kg

DRUGS (9)
  1. HEMLIBRA [Suspect]
     Active Substance: EMICIZUMAB-KXWH
     Indication: Factor VIII deficiency
     Route: 058
     Dates: start: 20211021
  2. HEMLIBRA [Suspect]
     Active Substance: EMICIZUMAB-KXWH
     Route: 058
     Dates: start: 20221020
  3. HEMLIBRA [Suspect]
     Active Substance: EMICIZUMAB-KXWH
     Route: 058
     Dates: start: 20231103
  4. HEMLIBRA [Suspect]
     Active Substance: EMICIZUMAB-KXWH
     Route: 058
     Dates: start: 20231117
  5. ELOCTATE [Concomitant]
     Active Substance: EFMOROCTOCOG ALFA
     Indication: Immune tolerance induction
     Dosage: 46.5 INTERNATIONAL UNIT/KILOGRAM, BIW
  6. ELOCTATE [Concomitant]
     Active Substance: EFMOROCTOCOG ALFA
     Dosage: 46.5 INTERNATIONAL UNIT/KILOGRAM, TIW
     Dates: start: 20211026
  7. ELOCTATE [Concomitant]
     Active Substance: EFMOROCTOCOG ALFA
     Dosage: 45.2 INTERNATIONAL UNIT/KILOGRAM, BIW
     Dates: start: 20220117
  8. ELOCTATE [Concomitant]
     Active Substance: EFMOROCTOCOG ALFA
     Dosage: 56.07 INTERNATIONAL UNIT/KILOGRAM, BIW
     Dates: start: 20230929
  9. ELOCTATE [Concomitant]
     Active Substance: EFMOROCTOCOG ALFA
     Dates: start: 20211011

REACTIONS (2)
  - Haemorrhage [Unknown]
  - Overdose [Unknown]

NARRATIVE: CASE EVENT DATE: 20230101
